FAERS Safety Report 8622534 (Version 2)
Quarter: 2014Q4

REPORT INFORMATION
  Report Type: Spontaneous
  Country: US (occurrence: US)
  Receive Date: 20120619
  Receipt Date: 20141023
  Transmission Date: 20150529
  Serious: Yes (Hospitalization, Other)
  Sender: FDA-Public Use
  Company Number: US-GLAXOSMITHKLINE-A0966809A

PATIENT
  Age: 56 Year
  Sex: Male

DRUGS (2)
  1. AVANDIA [Suspect]
     Active Substance: ROSIGLITAZONE MALEATE
     Dosage: 4 MG
     Dates: start: 20070308, end: 20091215
  2. AVANDIA [Suspect]
     Active Substance: ROSIGLITAZONE MALEATE
     Indication: DIABETES MELLITUS
     Dosage: 8 MG
     Route: 048
     Dates: start: 199906, end: 200206

REACTIONS (12)
  - Cardiac pacemaker insertion [Unknown]
  - Atrial fibrillation [Unknown]
  - Atrioventricular block second degree [Unknown]
  - Cardiac failure congestive [Unknown]
  - Coronary artery bypass [Unknown]
  - Stent placement [Unknown]
  - Coronary artery disease [Unknown]
  - Acute coronary syndrome [Unknown]
  - Myocardial infarction [Not Recovered/Not Resolved]
  - Sinus node dysfunction [Unknown]
  - Ischaemic cardiomyopathy [Unknown]
  - Atrial flutter [Unknown]

NARRATIVE: CASE EVENT DATE: 199909
